FAERS Safety Report 5748992-2 (Version None)
Quarter: 2008Q2

REPORT INFORMATION
  Report Type: 
  Country: None (occurrence: None)
  Receive Date: 20080527
  Receipt Date: 20080519
  Transmission Date: 20081010
  Serious: Yes (Death)
  Sender: FDA-Public Use
  Company Number: ZA-ELI_LILLY_AND_COMPANY-ZA200805003533

PATIENT
  Age: 47 Year
  Sex: Female

DRUGS (2)
  1. ZYPREXA [Suspect]
     Indication: AGITATION
     Dosage: 10 MG, EACH EVENING
     Route: 030
     Dates: start: 20080514
  2. RIDAQ [Concomitant]
     Indication: HYPERTENSION

REACTIONS (1)
  - EMBOLISM [None]
